FAERS Safety Report 25184139 (Version 2)
Quarter: 2025Q2

REPORT INFORMATION
  Report Type: Spontaneous
  Country: GB (occurrence: GB)
  Receive Date: 20250410
  Receipt Date: 20250505
  Transmission Date: 20250717
  Serious: Yes (Other)
  Sender: PFIZER
  Company Number: GB-PFM-2025-01776

PATIENT

DRUGS (2)
  1. ENCORAFENIB [Suspect]
     Active Substance: ENCORAFENIB
     Indication: Malignant melanoma
     Route: 048
  2. BINIMETINIB [Suspect]
     Active Substance: BINIMETINIB
     Indication: Malignant melanoma
     Route: 048

REACTIONS (2)
  - Second primary malignancy [Unknown]
  - Hodgkin^s disease [Unknown]
